FAERS Safety Report 8332630-9 (Version None)
Quarter: 2012Q2

REPORT INFORMATION
  Report Type: 
  Country: None (occurrence: None)
  Receive Date: 20120503
  Receipt Date: 20120418
  Transmission Date: 20120825
  Serious: Yes (Hospitalization)
  Sender: FDA-Public Use
  Company Number: CN-JNJFOC-20120501313

PATIENT
  Sex: Male
  Weight: 73 kg

DRUGS (2)
  1. RISPERIDONE [Suspect]
     Route: 048
  2. RISPERIDONE [Suspect]
     Indication: SCHIZOPHRENIA
     Route: 048
     Dates: start: 20110628, end: 20110801

REACTIONS (6)
  - PERSECUTORY DELUSION [None]
  - TARDIVE DYSKINESIA [None]
  - ABNORMAL BEHAVIOUR [None]
  - HALLUCINATION, AUDITORY [None]
  - INCOHERENT [None]
  - TREMOR [None]
